FAERS Safety Report 5598959-2 (Version None)
Quarter: 2008Q1

REPORT INFORMATION
  Report Type: 
  Country: None (occurrence: None)
  Receive Date: 20080122
  Receipt Date: 20080118
  Transmission Date: 20080703
  Serious: Yes (Life-Threatening)
  Sender: FDA-Public Use
  Company Number: JP-BOEHRINGER INGELHEIM PHARMACEUTICALS, INC.-2008-BP-00941NB

PATIENT
  Age: 60 Year
  Sex: Female

DRUGS (2)
  1. MICARDIS [Suspect]
     Indication: HYPERTENSION
     Route: 048
     Dates: start: 20080110, end: 20080117
  2. ALDACTONE [Concomitant]
     Route: 048
     Dates: end: 20080117

REACTIONS (2)
  - CARDIAC FAILURE [None]
  - RENAL FAILURE [None]
